FAERS Safety Report 9943080 (Version 2)
Quarter: 2023Q2

REPORT INFORMATION
  Report Type: Spontaneous
  Country: IL (occurrence: IL)
  Receive Date: 20140303
  Receipt Date: 20230620
  Transmission Date: 20230721
  Serious: Yes (Death, Other)
  Sender: FDA-Public Use
  Company Number: IL-SA-2014SA023569

PATIENT
  Age: 6 Year
  Sex: Female
  Weight: 23.3 kg

DRUGS (5)
  1. MYOZYME [Suspect]
     Active Substance: ALGLUCOSIDASE ALFA
     Indication: Glycogen storage disease type II
     Dosage: 18.88 MG/KG,QOW
     Route: 042
     Dates: start: 20071126
  2. DIGOXIN [Concomitant]
     Active Substance: DIGOXIN
     Dosage: UNK
     Route: 065
  3. FUROSEMIDE [Concomitant]
     Active Substance: FUROSEMIDE
     Dosage: 15 MG,QD
     Route: 065
  4. CARVEDILOL [Concomitant]
     Active Substance: CARVEDILOL
     Dosage: 3 MG,BID
     Route: 065
  5. ENALAPRIL [Concomitant]
     Active Substance: ENALAPRIL
     Dosage: 1 MG,BID
     Route: 065

REACTIONS (9)
  - Death [Fatal]
  - Myopathy [Unknown]
  - Peroneal nerve palsy [Unknown]
  - Asthenia [Unknown]
  - Limb asymmetry [Unknown]
  - Syncope [Unknown]
  - Developmental delay [Unknown]
  - Cardiomyopathy [Unknown]
  - Arrhythmia [Unknown]

NARRATIVE: CASE EVENT DATE: 20131201
